FAERS Safety Report 5324279-7 (Version None)
Quarter: 2007Q2

REPORT INFORMATION
  Report Type: 
  Country: None (occurrence: None)
  Receive Date: 20070514
  Receipt Date: 20070503
  Transmission Date: 20071010
  Serious: Yes (Death)
  Sender: FDA-Public Use
  Company Number: US-SHR-US-2007-015832

PATIENT

DRUGS (5)
  1. CAMPATH [Suspect]
     Dosage: 3/10/30 DOSE ESCALATION, WK1
     Route: 058
  2. CAMPATH [Suspect]
     Dosage: 30 MG 3XWEEKX17 WEEKS
     Route: 058
  3. CO-TRIMOXAZOLE [Concomitant]
     Indication: INFECTION PROPHYLAXIS
  4. FLUCONAZOLE [Concomitant]
     Indication: INFECTION PROPHYLAXIS
  5. VALACYCLOVIR HCL [Concomitant]
     Indication: INFECTION PROPHYLAXIS

REACTIONS (1)
  - SUDDEN DEATH [None]
